FAERS Safety Report 8561405-0 (Version None)
Quarter: 2012Q3

REPORT INFORMATION
  Report Type: 
  Country: None (occurrence: None)
  Receive Date: 20120802
  Receipt Date: 20120729
  Transmission Date: 20120928
  Serious: Yes (Hospitalization)
  Sender: FDA-Public Use
  Company Number: CA-GLAXOSMITHKLINE-A0987471A

PATIENT
  Sex: Female
  Weight: 81.7 kg

DRUGS (2)
  1. FLOLAN [Suspect]
     Indication: PULMONARY ARTERIAL HYPERTENSION
     Route: 042
     Dates: start: 20101101, end: 20120701
  2. FLOLAN [Suspect]
     Indication: PULMONARY ARTERIAL HYPERTENSION
     Dosage: 32.6NGK CONTINUOUS
     Route: 042
     Dates: start: 20101101, end: 20120701

REACTIONS (1)
  - LUNG TRANSPLANT [None]
